FAERS Safety Report 10109949 (Version 1)
Quarter: 2014Q2

REPORT INFORMATION
  Report Type: Spontaneous
  Country: CN (occurrence: CN)
  Receive Date: 20140425
  Receipt Date: 20140425
  Transmission Date: 20141212
  Serious: Yes (Hospitalization)
  Sender: FDA-Public Use
  Company Number: CN-BAYER-2014-058066

PATIENT
  Age: 78 Year
  Sex: Male
  Weight: 65 kg

DRUGS (1)
  1. AVELOX [Suspect]
     Indication: INFECTION PROPHYLAXIS
     Dosage: 0.4 G, UNK
     Route: 041
     Dates: start: 20131108, end: 20131111

REACTIONS (3)
  - Mental disorder [Recovering/Resolving]
  - Hallucination [Recovering/Resolving]
  - Abnormal dreams [Recovering/Resolving]
